FAERS Safety Report 14961823 (Version 1)
Quarter: 2018Q2

REPORT INFORMATION
  Report Type: Spontaneous
  Country: HU (occurrence: HU)
  Receive Date: 20180601
  Receipt Date: 20180601
  Transmission Date: 20180711
  Serious: Yes (Hospitalization, Disabling, Other)
  Sender: FDA-Public Use
  Company Number: HU-BRISTOL-MYERS SQUIBB COMPANY-BMS-2018-047665

PATIENT
  Sex: Male

DRUGS (1)
  1. LITALIR [Suspect]
     Active Substance: HYDROXYUREA
     Indication: LEUKAEMIA
     Dosage: 500 MG, QD
     Route: 048
     Dates: start: 2017

REACTIONS (4)
  - Hyperhidrosis [Unknown]
  - Diabetes mellitus [Unknown]
  - Osteomyelitis [Unknown]
  - Chills [Unknown]
